FAERS Safety Report 14704169 (Version 1)
Quarter: 2018Q2

REPORT INFORMATION
  Report Type: Spontaneous
  Country: TR (occurrence: TR)
  Receive Date: 20180402
  Receipt Date: 20180402
  Transmission Date: 20180711
  Serious: Yes (Other)
  Sender: FDA-Public Use
  Company Number: TR-TOLMAR, INC.-2018TR003391

PATIENT

DRUGS (4)
  1. XTANDI [Suspect]
     Active Substance: ENZALUTAMIDE
     Indication: HORMONE-REFRACTORY PROSTATE CANCER
     Dosage: 80 MG, BID (80 MG IN THE MORNING AND 80 MG IN THE EVENING)
     Route: 065
  2. XTANDI [Suspect]
     Active Substance: ENZALUTAMIDE
     Dosage: 160 MG, DAILY (IN THE MORNING)
     Route: 065
  3. DOCETAXEL. [Concomitant]
     Active Substance: DOCETAXEL
  4. ELIGARD [Suspect]
     Active Substance: LEUPROLIDE ACETATE
     Indication: PROSTATE CANCER
     Dosage: 22.5 MG, EVERY 3 MONTHS
     Route: 065

REACTIONS (2)
  - Presyncope [Unknown]
  - Lung neoplasm malignant [Unknown]
